FAERS Safety Report 19154033 (Version 1)
Quarter: 2021Q2

REPORT INFORMATION
  Report Type: Spontaneous
  Country: US (occurrence: US)
  Receive Date: 20210419
  Receipt Date: 20210419
  Transmission Date: 20210717
  Serious: No
  Sender: FDA-Public Use
  Company Number: US-FRESENIUS KABI-FK202103781

PATIENT
  Age: 24 Year
  Sex: Female
  Weight: 70 kg

DRUGS (22)
  1. FENTANYL. [Concomitant]
     Active Substance: FENTANYL
     Indication: PAIN
     Dosage: 100 MCG IV PUSH Q2 MIN PRN
     Route: 042
     Dates: start: 20210407
  2. AMPICILLIN [Concomitant]
     Active Substance: AMPICILLIN
     Indication: PRODUCT USED FOR UNKNOWN INDICATION
     Dosage: AMPICILLIN 2 G IVPB X1
     Route: 042
     Dates: start: 20210406
  3. OXYTOCIN. [Concomitant]
     Active Substance: OXYTOCIN
     Indication: PRODUCT USED FOR UNKNOWN INDICATION
     Dosage: OXYTOCIN 30 U IN 500 ML LR BOLUS
     Route: 065
     Dates: start: 20210406
  4. PARACETAMOL [Concomitant]
     Active Substance: ACETAMINOPHEN
     Indication: PAIN
     Dosage: ACETAMINOPHEN 650 MG TABLET PO Q4H PRN
     Route: 048
     Dates: start: 20210408
  5. DOCUSATE [Concomitant]
     Active Substance: DOCUSATE
     Indication: PRODUCT USED FOR UNKNOWN INDICATION
     Dosage: DOCUSATE 200 MG PO QHS
     Route: 048
     Dates: start: 20210408
  6. FERROUS SULFATE. [Concomitant]
     Active Substance: FERROUS SULFATE
     Indication: PRODUCT USED FOR UNKNOWN INDICATION
     Dosage: FERROUS SULFATE 325 MG PO QDAY
     Route: 048
     Dates: start: 20210408
  7. NAROPIN [Suspect]
     Active Substance: ROPIVACAINE HYDROCHLORIDE
     Indication: EPIDURAL ANAESTHESIA
     Dosage: EPIDURAL DRIP PF PREMIX (ROPIVACAINE 0.2 PERCENT IN NACL 0.9 PERCENT 100 ML); 10 ML/HR?ONE TIME DOSE
     Route: 008
     Dates: start: 20210407
  8. FENTANYL. [Concomitant]
     Active Substance: FENTANYL
     Indication: PAIN
     Dosage: 50 MCG IV PUSH Q10 MIN PRN
     Route: 042
     Dates: start: 20210406
  9. LIDOCAINE. [Concomitant]
     Active Substance: LIDOCAINE
     Indication: EPISIOTOMY
     Dosage: LIDOCAINE 1 PERCENT INJECTION 20 ML INJECTION ONCE PRN
     Route: 042
     Dates: start: 20210406
  10. DINOPROSTONE. [Concomitant]
     Active Substance: DINOPROSTONE
     Indication: PRODUCT USED FOR UNKNOWN INDICATION
     Dosage: ONCE
     Route: 067
     Dates: start: 20210406
  11. PARACETAMOL/HYDROCODONE BITARTRATE [Concomitant]
     Active Substance: ACETAMINOPHEN\HYDROCODONE BITARTRATE
     Indication: PAIN
     Dosage: HYDROCODONE/ACETAMINOPHEN: 5/325 MG 2 TABLETS PO Q6H PRN
     Route: 048
     Dates: start: 20210408
  12. ERGOCALCIFEROL/ASCORBIC ACID/PYRIDOXINE HYDROCHLORIDE/CYANOCOBALAMIN/RETINOL PALMITATE/RIBOFLAVIN/NI [Concomitant]
     Indication: PRODUCT USED FOR UNKNOWN INDICATION
     Route: 065
     Dates: start: 20210408
  13. PANTOPRAZOLE [Concomitant]
     Active Substance: PANTOPRAZOLE
     Indication: PRODUCT USED FOR UNKNOWN INDICATION
     Dosage: 30 MG IV PUSH QDAY
     Route: 042
     Dates: start: 20210407
  14. BUPIVACAINE. [Concomitant]
     Active Substance: BUPIVACAINE
     Indication: PRODUCT USED FOR UNKNOWN INDICATION
     Dosage: EPIDURAL DRIP PF PREMIX (FENTANYL 2 MCG/ML, BUPIVACAINE 0.125 PERCENT IN NACL 0.9 PERCENT 250 ML) AT
     Dates: start: 20210408
  15. TERBUTALINE [Concomitant]
     Active Substance: TERBUTALINE
     Indication: PRODUCT USED FOR UNKNOWN INDICATION
     Dosage: TERBUTALINE INJECTION 0.25 MG SQ ONCE PRN
     Route: 058
     Dates: start: 20210406
  16. ONDANSETRON [Concomitant]
     Active Substance: ONDANSETRON
     Indication: VOMITING
  17. FENTANYL. [Concomitant]
     Active Substance: FENTANYL
     Indication: PRODUCT USED FOR UNKNOWN INDICATION
     Dosage: EPIDURAL DRIP PF PREMIX (FENTANYL 2 MCG/ML, BUPIVACAINE 0.125 PERCENT IN NACL 0.9 PERCENT 250 ML) AT
     Dates: start: 20210408
  18. PARAFFIN, LIQUID [Concomitant]
     Active Substance: MINERAL OIL
     Indication: PRODUCT USED FOR UNKNOWN INDICATION
     Dosage: ONCE PRN
     Route: 061
     Dates: start: 20210406
  19. ONDANSETRON [Concomitant]
     Active Substance: ONDANSETRON
     Indication: NAUSEA
     Dosage: 4 MG IV PUSH Q8H PRN N/V
     Route: 042
     Dates: start: 20210407
  20. CALCIUM CARBONATE. [Concomitant]
     Active Substance: CALCIUM CARBONATE
     Indication: PRODUCT USED FOR UNKNOWN INDICATION
     Dosage: 1,000 MG PO QDAY
     Route: 048
     Dates: start: 20210407
  21. ANTI?D IMMUNOGLOBULIN [Concomitant]
     Active Substance: HUMAN RHO(D) IMMUNE GLOBULIN
     Indication: PRODUCT USED FOR UNKNOWN INDICATION
     Dosage: RHO (D) IMMUNE GLOBULIN INJECTION 300 MCG IM ONCE
     Route: 030
     Dates: start: 20210408
  22. DOCUSATE [Concomitant]
     Active Substance: DOCUSATE
     Indication: PRODUCT USED FOR UNKNOWN INDICATION
     Dosage: DOCUSATE 100 MG PO QHS
     Route: 048
     Dates: start: 20210409

REACTIONS (1)
  - Drug ineffective [Unknown]
